FAERS Safety Report 6754715-0 (Version None)
Quarter: 2010Q2

REPORT INFORMATION
  Report Type: 
  Country: None (occurrence: None)
  Receive Date: 20100603
  Receipt Date: 20100524
  Transmission Date: 20101027
  Serious: Yes (Other)
  Sender: FDA-Public Use
  Company Number: US-BAXTER-2010BH013247

PATIENT
  Age: 49 Year
  Sex: Male

DRUGS (3)
  1. DIANEAL [Suspect]
     Indication: PERITONEAL DIALYSIS
     Route: 033
  2. MINOXIDIL [Suspect]
     Indication: HYPERTENSION
     Route: 065
     Dates: start: 20100427
  3. HEPATITIS B VACCINATION [Suspect]
     Route: 065
     Dates: start: 20100501

REACTIONS (4)
  - HEPATITIS B [None]
  - HYPERTENSION [None]
  - OEDEMA PERIPHERAL [None]
  - WEIGHT INCREASED [None]
